FAERS Safety Report 7244610-5 (Version None)
Quarter: 2011Q1

REPORT INFORMATION
  Report Type: 
  Country: None (occurrence: None)
  Receive Date: 20110125
  Receipt Date: 20100927
  Transmission Date: 20110831
  Serious: No
  Sender: FDA-Public Use
  Company Number: US-MYLANLABS-2010S1015412

PATIENT
  Age: 37 Year
  Sex: Female

DRUGS (2)
  1. ZONISAMIDE [Suspect]
     Indication: MIGRAINE
     Route: 048
     Dates: start: 20100813, end: 20100818
  2. MULTI-VITAMIN [Concomitant]

REACTIONS (9)
  - PAIN [None]
  - CONFUSIONAL STATE [None]
  - FEELING DRUNK [None]
  - VOMITING [None]
  - REACTION TO DRUG EXCIPIENTS [None]
  - MYDRIASIS [None]
  - DIZZINESS [None]
  - PYREXIA [None]
  - DYSARTHRIA [None]
